FAERS Safety Report 10526982 (Version 1)
Quarter: 2014Q4

REPORT INFORMATION
  Report Type: Spontaneous
  Country: US (occurrence: None)
  Receive Date: 20141015
  Receipt Date: 20141015
  Transmission Date: 20150528
  Serious: Yes (Life-Threatening, Hospitalization, Disabling)
  Sender: FDA-Public Use
  Company Number: None

PATIENT
  Age: 34 Year
  Sex: Male
  Weight: 90.72 kg

DRUGS (1)
  1. METOPROLOL SUCCINATE. [Suspect]
     Active Substance: METOPROLOL SUCCINATE
     Indication: SUPRAVENTRICULAR TACHYCARDIA
     Dosage: 1/2 PILL TWICE DAILY TAKEN BY MOUTH
     Route: 048
     Dates: start: 20140611, end: 20140628

REACTIONS (20)
  - Hallucination, visual [None]
  - Speech disorder [None]
  - Product substitution issue [None]
  - Psychotic disorder [None]
  - Anxiety [None]
  - Insomnia [None]
  - Renal failure [None]
  - Night sweats [None]
  - Nervousness [None]
  - Mania [None]
  - Muscle spasms [None]
  - Weight decreased [None]
  - Tachycardia [None]
  - Chills [None]
  - Mood swings [None]
  - Nervous system disorder [None]
  - Paranoia [None]
  - Imprisonment [None]
  - Hallucination, auditory [None]
  - General physical health deterioration [None]

NARRATIVE: CASE EVENT DATE: 20140628
